FAERS Safety Report 6912209-3 (Version None)
Quarter: 2010Q3

REPORT INFORMATION
  Report Type: 
  Country: None (occurrence: None)
  Receive Date: 20100806
  Receipt Date: 20080220
  Transmission Date: 20110219
  Serious: No
  Sender: FDA-Public Use
  Company Number: US-PFIZER INC-2007106332

PATIENT
  Sex: Male

DRUGS (1)
  1. VFEND [Suspect]

REACTIONS (3)
  - CHEST PAIN [None]
  - COLD SWEAT [None]
  - DRUG INEFFECTIVE [None]
